FAERS Safety Report 17032177 (Version 1)
Quarter: 2019Q4

REPORT INFORMATION
  Report Type: Spontaneous
  Country: US (occurrence: US)
  Receive Date: 20191011
  Receipt Date: 20191011
  Transmission Date: 20200122
  Serious: Yes (Other)
  Sender: FDA-Public Use
  Company Number: None

PATIENT
  Age: 72 Year
  Sex: Female
  Weight: 113.4 kg

DRUGS (12)
  1. ARIPRAZOLE [Concomitant]
     Active Substance: ARIPIPRAZOLE
  2. LORAZEPAM. [Concomitant]
     Active Substance: LORAZEPAM
  3. METROPROLOL [Concomitant]
     Active Substance: METOPROLOL
  4. PERPHENAZINE. [Concomitant]
     Active Substance: PERPHENAZINE
  5. LOW DOSE ASPIRIN [Concomitant]
     Active Substance: ASPIRIN
  6. ZYPREXA [Suspect]
     Active Substance: OLANZAPINE
     Indication: DRUG THERAPY
     Dosage: ?          QUANTITY:10 DF DOSAGE FORM;?
     Route: 048
     Dates: start: 20190915, end: 20190925
  7. CABAMAZEPINE [Concomitant]
  8. VITAMIN D3 [Concomitant]
     Active Substance: CHOLECALCIFEROL
  9. TYLENALL [Concomitant]
  10. LISINOPRIL. [Concomitant]
     Active Substance: LISINOPRIL
  11. FUROSEMIDE. [Concomitant]
     Active Substance: FUROSEMIDE
  12. JANUVIA [Concomitant]
     Active Substance: SITAGLIPTIN PHOSPHATE

REACTIONS (3)
  - Joint swelling [None]
  - Rash [None]
  - Mental disorder [None]

NARRATIVE: CASE EVENT DATE: 20190915
